FAERS Safety Report 5864326-7 (Version None)
Quarter: 2008Q3

REPORT INFORMATION
  Report Type: 
  Country: None (occurrence: None)
  Receive Date: 20080829
  Receipt Date: 20080606
  Transmission Date: 20090109
  Serious: No
  Sender: FDA-Public Use
  Company Number: US-ABBOTT-08P-163-0455783-00

PATIENT
  Sex: Male
  Weight: 92.72 kg

DRUGS (4)
  1. SIMCOR [Suspect]
     Indication: BLOOD CHOLESTEROL INCREASED
     Dosage: 500/20 ONCE A DAY
     Route: 048
     Dates: start: 20080505
  2. INSULIN LISPRO [Concomitant]
     Indication: TYPE 1 DIABETES MELLITUS
     Route: 058
  3. LANTUS [Concomitant]
     Indication: TYPE 1 DIABETES MELLITUS
     Route: 058
  4. SYMLIN [Concomitant]
     Indication: TYPE 1 DIABETES MELLITUS
     Route: 058

REACTIONS (2)
  - FLUSHING [None]
  - URTICARIA [None]
